FAERS Safety Report 21120200 (Version 2)
Quarter: 2022Q3

REPORT INFORMATION
  Report Type: Spontaneous
  Country: US (occurrence: US)
  Receive Date: 20220722
  Receipt Date: 20220725
  Transmission Date: 20221026
  Serious: No
  Sender: FDA-Public Use
  Company Number: US-PFIZER INC-PV202200027628

PATIENT
  Age: 89 Year
  Sex: Female
  Weight: 31.746 kg

DRUGS (3)
  1. PAXLOVID [Suspect]
     Active Substance: NIRMATRELVIR\RITONAVIR
     Indication: COVID-19 treatment
     Dosage: 3 DF
     Dates: start: 20220714, end: 20220719
  2. CARVEDILOL [Concomitant]
     Active Substance: CARVEDILOL
     Dosage: 2X/DAY (WITH BREAKFAST AND DINNER)
  3. ASPIRIN [Concomitant]
     Active Substance: ASPIRIN
     Dosage: UNK

REACTIONS (7)
  - Asthenia [Unknown]
  - Diarrhoea [Unknown]
  - Dry mouth [Unknown]
  - Respiratory disorder [Unknown]
  - Constipation [Unknown]
  - Muscular weakness [Recovering/Resolving]
  - Respiratory tract congestion [Recovering/Resolving]

NARRATIVE: CASE EVENT DATE: 20220701
